FAERS Safety Report 24031279 (Version 3)
Quarter: 2024Q3

REPORT INFORMATION
  Report Type: Spontaneous
  Country: US (occurrence: US)
  Receive Date: 20240629
  Receipt Date: 20240704
  Transmission Date: 20241016
  Serious: No
  Sender: NOVARTIS
  Company Number: US-002147023-NVSC2024US135537

PATIENT
  Sex: Female

DRUGS (1)
  1. KESIMPTA [Suspect]
     Active Substance: OFATUMUMAB
     Indication: Multiple sclerosis
     Dosage: 20 MG (ONCE A WEEK FOR 3 WEEKS, SKIP WEEK 4, WEEK 5 START MONTHLY)
     Route: 058
     Dates: start: 202309

REACTIONS (1)
  - Headache [Unknown]
